FAERS Safety Report 9290762 (Version 1)
Quarter: 2013Q2

REPORT INFORMATION
  Report Type: Spontaneous
  Country: FR (occurrence: FR)
  Receive Date: 20130515
  Receipt Date: 20130515
  Transmission Date: 20140414
  Serious: Yes (Other)
  Sender: FDA-Public Use
  Company Number: PHHY2013FR046578

PATIENT
  Age: 61 Year
  Sex: Female

DRUGS (4)
  1. OXALIPLATIN [Suspect]
     Indication: CHEMOTHERAPY
     Dosage: 100 MG/M2, UNK
  2. OXALIPLATIN [Suspect]
     Indication: CHOLANGIOCARCINOMA
  3. GEMCITABINE [Suspect]
     Indication: CHEMOTHERAPY
  4. GEMCITABINE [Suspect]
     Indication: CHOLANGIOCARCINOMA

REACTIONS (4)
  - Nodular regenerative hyperplasia [Unknown]
  - Portal hypertension [Unknown]
  - Splenomegaly [Recovered/Resolved]
  - Thrombocytopenia [Unknown]
